FAERS Safety Report 18399510 (Version 4)
Quarter: 2020Q4

REPORT INFORMATION
  Report Type: Spontaneous
  Country: US (occurrence: US)
  Receive Date: 20201019
  Receipt Date: 20201029
  Transmission Date: 20210114
  Serious: No
  Sender: FDA-Public Use
  Company Number: US-AMGEN-USASP2020165090

PATIENT
  Age: 67 Year
  Sex: Male
  Weight: 59.41 kg

DRUGS (6)
  1. IRINOTECAN [Concomitant]
     Active Substance: IRINOTECAN
     Dosage: UNK
  2. OXALIPLATIN. [Concomitant]
     Active Substance: OXALIPLATIN
     Dosage: UNK
  3. NEULASTA [Suspect]
     Active Substance: PEGFILGRASTIM
     Dosage: UNK
     Route: 065
  4. NEULASTA [Suspect]
     Active Substance: PEGFILGRASTIM
     Indication: NEUTROPENIA
     Dosage: UNK
     Route: 065
  5. LEUCOVORINE [Concomitant]
     Active Substance: LEUCOVORIN
     Dosage: UNK
  6. FLUOROURACIL 5 FU [Concomitant]
     Active Substance: FLUOROURACIL
     Dosage: UNK

REACTIONS (3)
  - Application site pain [Unknown]
  - Weight decreased [Unknown]
  - Device physical property issue [Unknown]

NARRATIVE: CASE EVENT DATE: 20201009
